FAERS Safety Report 6083072-0 (Version None)
Quarter: 2009Q1

REPORT INFORMATION
  Report Type: 
  Country: None (occurrence: None)
  Receive Date: 20090218
  Receipt Date: 20090209
  Transmission Date: 20090719
  Serious: Yes (Other)
  Sender: FDA-Public Use
  Company Number: US-GENENTECH-277145

PATIENT
  Age: 69 Year
  Sex: Male

DRUGS (1)
  1. RITUXAN [Suspect]
     Indication: RHEUMATOID ARTHRITIS
     Dosage: UNK
     Dates: start: 20080828

REACTIONS (1)
  - INTERSTITIAL LUNG DISEASE [None]
